FAERS Safety Report 7277625-1 (Version None)
Quarter: 2011Q1

REPORT INFORMATION
  Report Type: 
  Country: None (occurrence: None)
  Receive Date: 20110202
  Receipt Date: 20110202
  Transmission Date: 20110831
  Serious: Yes (Disabling, Other)
  Sender: FDA-Public Use
  Company Number: None

PATIENT
  Age: 28 Year
  Sex: Female
  Weight: 61.6892 kg

DRUGS (1)
  1. PARAGARD COPPER IUD 0 PARAGARD [Suspect]
     Indication: CONTRACEPTION
     Dates: start: 20040920, end: 20101220

REACTIONS (1)
  - ACNE CYSTIC [None]
